FAERS Safety Report 5148166-2 (Version None)
Quarter: 2006Q4

REPORT INFORMATION
  Report Type: 
  Country: None (occurrence: None)
  Receive Date: 20061110
  Receipt Date: 20060320
  Transmission Date: 20070319
  Serious: Yes (Life-Threatening, Hospitalization)
  Sender: FDA-Public Use
  Company Number: DE-ELI_LILLY_AND_COMPANY-DE200603005459

PATIENT
  Age: 20 Year
  Sex: Female

DRUGS (13)
  1. ZYPREXA [Suspect]
     Indication: DEPRESSION
     Dosage: 5 MG, DAILY (1/D)
     Route: 048
     Dates: start: 20060222, end: 20060223
  2. ZYPREXA [Suspect]
     Dosage: 10 MG, DAILY (1/D)
     Route: 048
     Dates: start: 20060224, end: 20060303
  3. APONAL [Concomitant]
     Dosage: 50 MG, DAILY (1/D)
     Route: 048
     Dates: start: 20060203, end: 20060209
  4. APONAL [Concomitant]
     Dosage: 100 MG, DAILY (1/D)
     Route: 048
     Dates: start: 20060210, end: 20060214
  5. APONAL [Concomitant]
     Dosage: 125 MG, DAILY (1/D)
     Route: 048
     Dates: start: 20060215, end: 20060226
  6. APONAL [Concomitant]
     Dosage: 150 MG, DAILY (1/D)
     Route: 048
     Dates: start: 20060227, end: 20060303
  7. ZOPICLONE [Concomitant]
     Dosage: 3.75 MG, DAILY (1/D)
     Dates: start: 20060202, end: 20060302
  8. MIRTAZAPINE [Concomitant]
     Dosage: 15 MG, DAILY (1/D)
     Route: 048
     Dates: start: 20060301, end: 20060301
  9. MIRTAZAPINE [Concomitant]
     Dosage: 30 MG, DAILY (1/D)
     Route: 048
     Dates: start: 20060302, end: 20060303
  10. TAVOR [Concomitant]
     Dosage: 1.5 MG, DAILY (1/D)
     Route: 048
     Dates: start: 20060222, end: 20060227
  11. TAVOR [Concomitant]
     Dosage: 1 MG, DAILY (1/D)
     Route: 048
     Dates: start: 20060228, end: 20060303
  12. LEVOTHYROXINE SODIUM [Concomitant]
     Dosage: 50 UG, DAILY (1/D)
     Route: 048
     Dates: start: 20060220, end: 20060303
  13. KALINOR [Concomitant]
     Dates: start: 20060221, end: 20060303

REACTIONS (10)
  - ABDOMINAL PAIN UPPER [None]
  - FALL [None]
  - HEPATIC FAILURE [None]
  - HEPATOCELLULAR DAMAGE [None]
  - JAW FRACTURE [None]
  - LACERATION [None]
  - NAUSEA [None]
  - SUICIDE ATTEMPT [None]
  - TRANSAMINASES INCREASED [None]
  - VOMITING [None]
